FAERS Safety Report 5657349-4 (Version None)
Quarter: 2008Q1

REPORT INFORMATION
  Report Type: 
  Country: None (occurrence: None)
  Receive Date: 20080310
  Receipt Date: 20080226
  Transmission Date: 20080703
  Serious: Yes (Hospitalization, Other)
  Sender: FDA-Public Use
  Company Number: PHBS2007AU21303

PATIENT
  Age: 53 Year
  Sex: Female

DRUGS (8)
  1. CYTARABINE [Suspect]
     Dosage: 3 G/M2 BID ON DAY 1, 3, 5, 7
     Route: 042
     Dates: start: 20040119, end: 20040126
  2. CYTARABINE [Suspect]
     Dosage: 100 MG/M2
     Route: 042
  3. IDARUBICIN HCL [Suspect]
     Dosage: 12 MG/M2 D1-3
     Route: 065
     Dates: start: 20040119, end: 20040121
  4. IDARUBICIN HCL [Suspect]
     Dosage: 9 MG/M2
     Route: 065
  5. HEMATOPOETIC PROGENITOR CELLS HUMAN [Concomitant]
     Dosage: AUTOLOGOUS STEM CELL TRANSPLANT
  6. FLUDARABINE [Concomitant]
     Dosage: 25 MG/M2 D - 6 TO -2
     Route: 065
  7. CYCLOPHOSPHAMIDE [Concomitant]
     Dosage: 1 G/M2 -2 AND -1
     Route: 065
  8. IMATINIB [Suspect]
     Indication: ACUTE MYELOID LEUKAEMIA
     Dosage: 400 MG/D
     Route: 065
     Dates: end: 20040210

REACTIONS (5)
  - LIVER FUNCTION TEST ABNORMAL [None]
  - NEUTROPENIA [None]
  - NEUTROPENIC COLITIS [None]
  - OEDEMA PERIPHERAL [None]
  - THROMBOCYTOPENIA [None]
